FAERS Safety Report 21717497 (Version 1)
Quarter: 2022Q4

REPORT INFORMATION
  Report Type: Spontaneous
  Country: JP (occurrence: JP)
  Receive Date: 20221212
  Receipt Date: 20221212
  Transmission Date: 20230112
  Serious: Yes (Hospitalization)
  Sender: FDA-Public Use
  Company Number: JP-ALLERGAN-2240455US

PATIENT
  Sex: Female

DRUGS (11)
  1. RISEDRONATE SODIUM [Suspect]
     Active Substance: RISEDRONATE SODIUM
     Indication: Osteoporosis
     Dosage: 17.5 MG, Q WEEK
     Route: 048
     Dates: start: 2005, end: 2015
  2. DENOSUMAB [Suspect]
     Active Substance: DENOSUMAB
     Indication: Osteoporosis
     Dosage: ACTUAL: 60 MG, SINGLE (THE 10TH DOSE)
     Route: 058
     Dates: start: 2020, end: 2020
  3. DENOSUMAB [Suspect]
     Active Substance: DENOSUMAB
     Dosage: ACTUAL: 60 MG 6 MONTHLY (DOSES 2 TO 9))
     Route: 058
  4. DENOSUMAB [Suspect]
     Active Substance: DENOSUMAB
     Dosage: 60 MG, SINGLE
     Route: 058
     Dates: start: 201601, end: 201601
  5. LEVOTHYROXINE SODIUM [Concomitant]
     Active Substance: LEVOTHYROXINE SODIUM
     Dosage: 37.5 ?G, QD
     Route: 048
  6. ATORVASTATIN CALCIUM [Concomitant]
     Active Substance: ATORVASTATIN CALCIUM
     Dosage: 50 MG, QD
     Route: 048
  7. ALLOPURINOL [Concomitant]
     Active Substance: ALLOPURINOL
     Dosage: 8 MG, QD
     Route: 048
  8. CANDESARTAN CILEXETIL [Concomitant]
     Active Substance: CANDESARTAN CILEXETIL
     Dosage: 6.25 MG, QD
     Route: 048
  9. HYDROCHLOROTHIAZIDE [Concomitant]
     Active Substance: HYDROCHLOROTHIAZIDE
     Dosage: 5 MG, QD
     Route: 048
  10. TRIMEBUTINE MALEATE [Concomitant]
     Active Substance: TRIMEBUTINE MALEATE
     Dosage: 100 MG, QD
     Route: 048
  11. ETIZOLAM [Concomitant]
     Active Substance: ETIZOLAM
     Dosage: 1 MG, QD
     Route: 048

REACTIONS (3)
  - Ulna fracture [Recovered/Resolved]
  - Atypical fracture [Recovered/Resolved]
  - Fracture displacement [Recovered/Resolved]

NARRATIVE: CASE EVENT DATE: 20200901
